FAERS Safety Report 9145592 (Version 1)
Quarter: 2013Q1

REPORT INFORMATION
  Report Type: Spontaneous
  Country: US (occurrence: US)
  Receive Date: 20130307
  Receipt Date: 20130307
  Transmission Date: 20140127
  Serious: No
  Sender: FDA-Public Use
  Company Number: US-PFIZER INC-2013074759

PATIENT
  Age: 79 Year
  Sex: Male

DRUGS (2)
  1. SEPTRA [Suspect]
     Dosage: UNK
     Route: 048
  2. TRIMETHOPRIM [Suspect]
     Dosage: UNK

REACTIONS (2)
  - Rash [Unknown]
  - Drug hypersensitivity [Unknown]
